FAERS Safety Report 5962862-6 (Version None)
Quarter: 2008Q4

REPORT INFORMATION
  Report Type: 
  Country: None (occurrence: None)
  Receive Date: 20081124
  Receipt Date: 20081117
  Transmission Date: 20090506
  Serious: Yes (Other)
  Sender: FDA-Public Use
  Company Number: US-BAYER-200838839NA

PATIENT
  Age: 19 Year
  Sex: Female

DRUGS (1)
  1. MIRENA [Suspect]
     Indication: CONTRACEPTION
     Route: 015
     Dates: start: 20081110

REACTIONS (7)
  - ACNE [None]
  - CRYING [None]
  - DEPRESSION [None]
  - FATIGUE [None]
  - SKIN LESION [None]
  - SUICIDAL IDEATION [None]
  - WEIGHT INCREASED [None]
